FAERS Safety Report 4279357-0 (Version None)
Quarter: 2004Q1

REPORT INFORMATION
  Report Type: 
  Country: None (occurrence: None)
  Receive Date: 20040123
  Receipt Date: 20040115
  Transmission Date: 20041129
  Serious: Yes (Death, Hospitalization)
  Sender: FDA-Public Use
  Company Number: US-JNJFOC-20030803299

PATIENT
  Age: 69 Year
  Sex: Female

DRUGS (19)
  1. DURAGESIC [Suspect]
     Indication: PAIN
     Dosage: SEE IMAGE
     Route: 062
     Dates: end: 20030801
  2. DURAGESIC [Suspect]
     Indication: PAIN
     Dosage: SEE IMAGE
     Route: 062
     Dates: start: 20030717
  3. DURAGESIC [Suspect]
     Indication: PAIN
     Dosage: SEE IMAGE
     Route: 062
     Dates: start: 20030801
  4. DURAGESIC [Suspect]
     Indication: PAIN
     Dosage: SEE IMAGE
     Route: 062
     Dates: start: 20030801
  5. PULMICORT [Concomitant]
  6. SERVENT (SALMETEROL XINAFOATE) [Concomitant]
  7. ATROVENT [Concomitant]
  8. COUMADIN [Concomitant]
  9. DOCUSATE (DOCUSATE) [Concomitant]
  10. ESTRADIOL [Concomitant]
  11. LANOXIN [Concomitant]
  12. LASIX [Concomitant]
  13. LEVAQUIN [Concomitant]
  14. LEXAPRO (ALL OTHER THERAPEUTIC PRODUCTS) [Concomitant]
  15. LORCET (VICODIN) [Concomitant]
  16. MEGACE [Concomitant]
  17. MICROK (POTASSIUM CHLORIDE) [Concomitant]
  18. PREVACID [Concomitant]
  19. NYSTATIN [Concomitant]

REACTIONS (5)
  - ANXIETY [None]
  - CONFUSIONAL STATE [None]
  - HALLUCINATION [None]
  - MALIGNANT NEOPLASM PROGRESSION [None]
  - MEMORY IMPAIRMENT [None]
